FAERS Safety Report 7993046-8 (Version None)
Quarter: 2011Q4

REPORT INFORMATION
  Report Type: 
  Country: None (occurrence: None)
  Receive Date: 20111219
  Receipt Date: 20111209
  Transmission Date: 20120403
  Serious: Yes (Hospitalization)
  Sender: FDA-Public Use
  Company Number: US-PURDUE-USA-2011-0078111

PATIENT
  Sex: Female

DRUGS (4)
  1. OXYCONTIN [Suspect]
     Dosage: 40 MG, Q12H
  2. OXYCODONE HCL [Suspect]
     Indication: PAIN
     Dosage: 10 MG, Q4H PRN
     Route: 048
  3. OXYCONTIN [Suspect]
     Dosage: 160 MG, Q12H
     Route: 048
  4. OXYCONTIN [Suspect]
     Indication: PAIN
     Dosage: 80 MG, Q12H

REACTIONS (5)
  - INADEQUATE ANALGESIA [None]
  - PYREXIA [None]
  - BRONCHITIS [None]
  - PLEURAL EFFUSION [None]
  - CHEST PAIN [None]
